FAERS Safety Report 4421295-4 (Version None)
Quarter: 2004Q3

REPORT INFORMATION
  Report Type: 
  Country: None (occurrence: None)
  Receive Date: 20040707
  Receipt Date: 20040324
  Transmission Date: 20050211
  Serious: No
  Sender: FDA-Public Use
  Company Number: A03200400937

PATIENT
  Age: 67 Year
  Sex: Female

DRUGS (2)
  1. ARIXTRA [Suspect]
     Indication: SURGERY
     Dosage: SUBCUTANEOUS
     Route: 058
     Dates: start: 20040101, end: 20040101
  2. ARIXTRA [Suspect]
     Indication: THROMBOSIS PROPHYLAXIS
     Dosage: SUBCUTANEOUS
     Route: 058
     Dates: start: 20040101, end: 20040101

REACTIONS (2)
  - POST PROCEDURAL HAEMORRHAGE [None]
  - WOUND DRAINAGE [None]
